FAERS Safety Report 10782694 (Version 1)
Quarter: 2015Q1

REPORT INFORMATION
  Report Type: Spontaneous
  Country: US (occurrence: US)
  Receive Date: 20150210
  Receipt Date: 20150210
  Transmission Date: 20150721
  Serious: No
  Sender: FDA-Public Use
  Company Number: US-GLAXOSMITHKLINE-A1067225A

PATIENT

DRUGS (1)
  1. ALLI [Suspect]
     Active Substance: ORLISTAT
     Indication: WEIGHT LOSS DIET
     Route: 048
     Dates: end: 20140325

REACTIONS (11)
  - Blood urine present [Recovered/Resolved]
  - Blood pressure decreased [Recovered/Resolved]
  - Dizziness [Recovered/Resolved]
  - Feeling abnormal [Recovered/Resolved]
  - Asthenia [Recovered/Resolved]
  - Malaise [Not Recovered/Not Resolved]
  - Thyroid disorder [Recovered/Resolved]
  - Nausea [Unknown]
  - Hyperhidrosis [Recovered/Resolved]
  - Vision blurred [Not Recovered/Not Resolved]
  - Syncope [Recovered/Resolved]
